FAERS Safety Report 9894417 (Version 2)
Quarter: 2014Q2

REPORT INFORMATION
  Report Type: Spontaneous
  Country: US (occurrence: US)
  Receive Date: 20140213
  Receipt Date: 20140415
  Transmission Date: 20141212
  Serious: Yes (Hospitalization, Other)
  Sender: FDA-Public Use
  Company Number: US-CELGENEUS-163-POMAL-14021353

PATIENT
  Sex: Female

DRUGS (2)
  1. POMALYST [Suspect]
     Indication: BREAST CANCER FEMALE
     Dosage: 4 MILLIGRAM
     Route: 048
     Dates: start: 201312
  2. POMALYST [Suspect]
     Dosage: 2 MILLIGRAM
     Route: 048
     Dates: start: 201402

REACTIONS (1)
  - Gastric haemorrhage [Recovered/Resolved]
